FAERS Safety Report 5521292-1 (Version None)
Quarter: 2007Q4

REPORT INFORMATION
  Report Type: 
  Country: None (occurrence: None)
  Receive Date: 20071119
  Receipt Date: 20061005
  Transmission Date: 20080405
  Serious: No
  Sender: FDA-Public Use
  Company Number: US-BOEHRINGER INGELHEIM PHARMACEUTICALS, INC.-2007-BP-00609BP

PATIENT
  Age: 75 Year
  Sex: Female

DRUGS (2)
  1. ZANTAC 150 [Suspect]
     Indication: GASTRITIS
     Route: 048
     Dates: start: 20060901, end: 20061004
  2. ATORVASTATIN CALCIUM [Concomitant]

REACTIONS (1)
  - DIARRHOEA [None]
